FAERS Safety Report 20917887 (Version 3)
Quarter: 2022Q3

REPORT INFORMATION
  Report Type: Spontaneous
  Country: JP (occurrence: JP)
  Receive Date: 20220606
  Receipt Date: 20220929
  Transmission Date: 20221027
  Serious: Yes (Hospitalization, Other)
  Sender: FDA-Public Use
  Company Number: JP-NBI-J202207950BIPI

PATIENT
  Age: 84 Year
  Sex: Male

DRUGS (1)
  1. OFEV [Suspect]
     Active Substance: NINTEDANIB
     Indication: Interstitial lung disease
     Route: 048
     Dates: start: 20220411, end: 20220418

REACTIONS (2)
  - Pneumonia aspiration [Recovered/Resolved]
  - Atelectasis [Recovered/Resolved]

NARRATIVE: CASE EVENT DATE: 20220506
